FAERS Safety Report 9701786 (Version 3)
Quarter: 2013Q4

REPORT INFORMATION
  Report Type: Report from Study
  Country: CA (occurrence: CA)
  Receive Date: 20131121
  Receipt Date: 20131129
  Transmission Date: 20140711
  Serious: No
  Sender: FDA-Public Use
  Company Number: PHHY2012CA014974

PATIENT
  Age: 46 Year
  Sex: Female
  Weight: 58.96 kg

DRUGS (3)
  1. EXTAVIA [Suspect]
     Indication: RELAPSING-REMITTING MULTIPLE SCLEROSIS
     Dosage: 2 MIU, QOD
     Route: 058
     Dates: start: 20120210
  2. EXTAVIA [Suspect]
     Dosage: 4 MIU, QOD
     Route: 058
  3. EXTAVIA [Suspect]
     Dosage: 8 MIU, QOD
     Route: 058

REACTIONS (7)
  - Memory impairment [Unknown]
  - Pain [Recovering/Resolving]
  - Feeling abnormal [Recovering/Resolving]
  - Application site pain [Recovering/Resolving]
  - Influenza like illness [Recovering/Resolving]
  - Headache [Recovering/Resolving]
  - Inappropriate schedule of drug administration [Unknown]
